FAERS Safety Report 7482762-2 (Version None)
Quarter: 2011Q2

REPORT INFORMATION
  Report Type: 
  Country: None (occurrence: None)
  Receive Date: 20110516
  Receipt Date: 20101229
  Transmission Date: 20111010
  Serious: No
  Sender: FDA-Public Use
  Company Number: US-BAYER-2011-027247

PATIENT
  Sex: Male

DRUGS (2)
  1. ALEVE (CAPLET) [Suspect]
     Dosage: BOTTLE COUNT 100S
     Dates: start: 19900101
  2. ALEVE (CAPLET) [Suspect]
     Indication: ARTHRALGIA
     Dosage: BOTTLE COUNT 24S
     Dates: start: 19900101

REACTIONS (1)
  - ARTHRALGIA [None]
